FAERS Safety Report 11487276 (Version 5)
Quarter: 2015Q4

REPORT INFORMATION
  Report Type: Spontaneous
  Country: US (occurrence: US)
  Receive Date: 20150910
  Receipt Date: 20151223
  Transmission Date: 20160304
  Serious: No
  Sender: FDA-Public Use
  Company Number: US-PFIZER INC-2015302018

PATIENT
  Age: 69 Year
  Sex: Female

DRUGS (9)
  1. ESTRADIOL. [Concomitant]
     Active Substance: ESTRADIOL
     Dosage: 0.5 MG, DAILY, (1QD)
     Dates: start: 20150428
  2. ACYCLOVIR. [Concomitant]
     Active Substance: ACYCLOVIR
     Dosage: 800 MG ONE TABLET DAILY (1QD)
     Route: 048
     Dates: start: 20150717
  3. ESTRIOL [Concomitant]
     Active Substance: ESTRIOL
     Dosage: 1 UNSPECIFIED, DAILY
     Dates: start: 20150428
  4. HYDROMORPHONE [Concomitant]
     Active Substance: HYDROMORPHONE
     Indication: PAIN
     Dosage: 2 MG TABLET, 2 TABLETS EVERY 4 HOURS AS NEEDED
     Route: 048
  5. ALPRAZOLAM. [Suspect]
     Active Substance: ALPRAZOLAM
     Indication: ANXIETY
     Dosage: 0.25 MG TABLETS, 2 TABLETS 3 TIMES A DAY AS NEEDED
     Route: 048
     Dates: start: 2007
  6. ESTRIOL [Concomitant]
     Active Substance: ESTRIOL
     Dosage: 0.5 MG ONE TABLET DAILY
     Route: 048
  7. OMEPRAZOLE. [Concomitant]
     Active Substance: OMEPRAZOLE
     Dosage: 20 MG, 1 CAPSULE ONCE DAILY
     Route: 048
  8. ALPRAZOLAM. [Suspect]
     Active Substance: ALPRAZOLAM
     Indication: PAIN
  9. HYDROMORPHONE [Concomitant]
     Active Substance: HYDROMORPHONE
     Indication: CANCER PAIN
     Dosage: 2 UNSPECIFIED, Q8H (3X/DAY)
     Dates: start: 201401

REACTIONS (3)
  - Product physical issue [Unknown]
  - Intentional product use issue [Unknown]
  - Nausea [Not Recovered/Not Resolved]

NARRATIVE: CASE EVENT DATE: 20150901
